FAERS Safety Report 8923907 (Version 1)
Quarter: 2012Q4

REPORT INFORMATION
  Report Type: 
  Country: IT (occurrence: IT)
  Receive Date: 20121126
  Receipt Date: 20121126
  Transmission Date: 20130627
  Serious: Yes (Hospitalization)
  Sender: FDA-Public Use
  Company Number: IT-TEVA-370634ISR

PATIENT
  Age: 64 Year
  Sex: Female

DRUGS (1)
  1. OXALIPLATIN [Suspect]
     Indication: COLON CANCER
     Dosage: 200 Milligram Daily;
     Route: 042
     Dates: start: 20121107, end: 20121107

REACTIONS (4)
  - Nervous system disorder [Recovered/Resolved]
  - Joint lock [Recovered/Resolved]
  - Vertigo [Recovered/Resolved]
  - Dyskinesia [Recovered/Resolved]
